FAERS Safety Report 4466348-X (Version None)
Quarter: 2004Q4

REPORT INFORMATION
  Report Type: 
  Country: None (occurrence: None)
  Receive Date: 20041005
  Receipt Date: 20040923
  Transmission Date: 20050328
  Serious: Yes (Hospitalization)
  Sender: FDA-Public Use
  Company Number: CH-GLAXOSMITHKLINE-B0346876A

PATIENT
  Age: 43 Year
  Sex: Male
  Weight: 91 kg

DRUGS (13)
  1. AMOXICILLIN [Suspect]
     Dosage: 1G TWICE PER DAY
     Route: 048
     Dates: start: 20030701
  2. ZYLORIC [Suspect]
     Indication: HYPERURICAEMIA
     Dosage: 100MG PER DAY
     Route: 048
     Dates: end: 20040607
  3. CLARITHROMYCIN [Suspect]
     Dosage: 500MG TWICE PER DAY
     Route: 048
     Dates: start: 20030701
  4. SANDIMMUNE [Suspect]
     Dosage: 150MG PER DAY
     Route: 048
  5. FLUOXETINE [Suspect]
     Dosage: 20MG PER DAY
     Route: 048
  6. RENITEN [Suspect]
     Dosage: 20MG PER DAY
     Route: 048
  7. TENORMIN [Suspect]
     Dosage: 50MG PER DAY
     Route: 048
  8. NORVASC [Concomitant]
     Dosage: 10MG PER DAY
     Route: 048
  9. MADOPAR [Concomitant]
     Dosage: 250MG PER DAY
     Route: 048
  10. PREDNISONE [Concomitant]
     Dosage: 7.5MG PER DAY
     Route: 048
  11. RIVOTRIL [Concomitant]
     Dosage: 1U PER DAY
     Route: 048
  12. CALCIMAGON-D3 [Concomitant]
     Dosage: 1U PER DAY
     Route: 048
  13. SIFROL [Concomitant]
     Dosage: .125MG PER DAY
     Route: 048
     Dates: start: 20040430, end: 20040607

REACTIONS (5)
  - ALANINE AMINOTRANSFERASE INCREASED [None]
  - BLOOD ALKALINE PHOSPHATASE INCREASED [None]
  - CHOLELITHIASIS [None]
  - GAMMA-GLUTAMYLTRANSFERASE INCREASED [None]
  - HEPATITIS CHOLESTATIC [None]
